APPROVED DRUG PRODUCT: HYDROCODONE BITARTRATE AND ACETAMINOPHEN
Active Ingredient: ACETAMINOPHEN; HYDROCODONE BITARTRATE
Strength: 325MG;2.5MG
Dosage Form/Route: TABLET;ORAL
Application: A211487 | Product #001 | TE Code: AA
Applicant: ASCENT PHARMACEUTICALS INC
Approved: Nov 7, 2018 | RLD: No | RS: Yes | Type: RX